FAERS Safety Report 11859865 (Version 1)
Quarter: 2015Q4

REPORT INFORMATION
  Report Type: Report from Study
  Country: BR (occurrence: BR)
  Receive Date: 20151222
  Receipt Date: 20151222
  Transmission Date: 20160305
  Serious: Yes (Other)
  Sender: FDA-Public Use
  Company Number: BR-SA-2015SA213262

PATIENT
  Age: 21 Year
  Sex: Male
  Weight: 81 kg

DRUGS (5)
  1. VANCOMYCIN [Concomitant]
     Active Substance: VANCOMYCIN
     Route: 042
     Dates: start: 20151208
  2. PREDNISONE. [Concomitant]
     Active Substance: PREDNISONE
     Dates: start: 20151213
  3. THYMOGLOBULINE [Suspect]
     Active Substance: LAPINE T-LYMPHOCYTE IMMUNE GLOBULIN
     Indication: RENAL TRANSPLANT
     Route: 042
     Dates: start: 20151213, end: 20151213
  4. EVEROLIMUS [Suspect]
     Active Substance: EVEROLIMUS
     Indication: RENAL TRANSPLANT
     Route: 048
     Dates: start: 20151213, end: 20151213
  5. FORTAZ [Concomitant]
     Active Substance: CEFTAZIDIME SODIUM
     Route: 042
     Dates: start: 20151208

REACTIONS (1)
  - Aspiration [Recovered/Resolved]
